FAERS Safety Report 5475786-8 (Version None)
Quarter: 2007Q4

REPORT INFORMATION
  Report Type: 
  Country: None (occurrence: None)
  Receive Date: 20071003
  Receipt Date: 20070927
  Transmission Date: 20080405
  Serious: Yes (Life-Threatening, Hospitalization, Other)
  Sender: FDA-Public Use
  Company Number: A0657872A

PATIENT
  Age: 13 Year
  Sex: Male
  Weight: 34.6 kg

DRUGS (4)
  1. ADVAIR DISKUS 100/50 [Suspect]
     Indication: ASTHMA
     Dosage: 1PUFF TWICE PER DAY
     Route: 055
     Dates: start: 20030915
  2. ALBUTEROL [Suspect]
     Indication: WHEEZING
     Route: 055
     Dates: start: 19940101
  3. SINGULAIR [Concomitant]
  4. LORATADINE [Concomitant]

REACTIONS (6)
  - ASTHMA [None]
  - DRUG INEFFECTIVE [None]
  - DRUG INTERACTION [None]
  - HYPOXIA [None]
  - STATUS ASTHMATICUS [None]
  - UPPER RESPIRATORY TRACT INFECTION [None]
